FAERS Safety Report 4620790-2 (Version None)
Quarter: 2005Q1

REPORT INFORMATION
  Report Type: 
  Country: None (occurrence: None)
  Receive Date: 20050325
  Receipt Date: 20050318
  Transmission Date: 20050727
  Serious: Yes (Disabling)
  Sender: FDA-Public Use
  Company Number: HQWYE676224NOV04

PATIENT
  Sex: Female

DRUGS (2)
  1. EFFEXOR XR [Suspect]
     Indication: DEPRESSION
     Dosage: ORAL
     Route: 048
  2. EFFEXOR XR [Suspect]
     Dosage: REDUCED DOSE TO 75 MG, ORAL
     Route: 048
     Dates: start: 20040101

REACTIONS (5)
  - BLOOD CATECHOLAMINES INCREASED [None]
  - DIZZINESS [None]
  - DRUG WITHDRAWAL SYNDROME [None]
  - FLUSHING [None]
  - IMPAIRED WORK ABILITY [None]
